FAERS Safety Report 10343353 (Version 2)
Quarter: 2014Q3

REPORT INFORMATION
  Report Type: Spontaneous
  Country: JP (occurrence: None)
  Receive Date: 20140723
  Receipt Date: 20140811
  Transmission Date: 20150326
  Serious: Yes (Hospitalization)
  Sender: FDA-Public Use
  Company Number: SYM-2014-23350

PATIENT
  Age: 79 Year
  Sex: Female

DRUGS (6)
  1. DIOVAN [Concomitant]
     Active Substance: VALSARTAN
  2. AMLODIN OD (AMLODIPINE BESILATE) [Concomitant]
  3. GASTER D (FAMOTIDINE) [Concomitant]
  4. DEPAS (ETIZOLAM) [Concomitant]
  5. GASLON N (IROGLADINE MALEATE) [Concomitant]
  6. CHOREAZINE [Suspect]
     Active Substance: TETRABENAZINE
     Indication: CHOREA
     Route: 048
     Dates: start: 20131130, end: 20131202

REACTIONS (3)
  - Depression [None]
  - Pneumonia [None]
  - Pyelonephritis [None]

NARRATIVE: CASE EVENT DATE: 20131203
